FAERS Safety Report 7933371-X (Version None)
Quarter: 2011Q4

REPORT INFORMATION
  Report Type: 
  Country: None (occurrence: None)
  Receive Date: 20111122
  Receipt Date: 20111122
  Transmission Date: 20120403
  Serious: Yes (Life-Threatening, Disabling, Other)
  Sender: FDA-Public Use
  Company Number: None

PATIENT
  Age: 65 Year
  Sex: Female
  Weight: 70.306 kg

DRUGS (1)
  1. NEXIUM [Suspect]
     Indication: GASTROOESOPHAGEAL REFLUX DISEASE
     Dosage: ONE CAPSUE
     Route: 048
     Dates: start: 20070101, end: 20110615

REACTIONS (10)
  - PALPITATIONS [None]
  - SICK SINUS SYNDROME [None]
  - LYMPHADENOPATHY [None]
  - ANAPHYLACTIC REACTION [None]
  - BLOOD MAGNESIUM DECREASED [None]
  - ELECTROLYTE IMBALANCE [None]
  - VOMITING [None]
  - ABDOMINAL PAIN UPPER [None]
  - SWELLING FACE [None]
  - NASAL CONGESTION [None]
